FAERS Safety Report 11436409 (Version 1)
Quarter: 2015Q3

REPORT INFORMATION
  Report Type: Spontaneous
  Country: US (occurrence: US)
  Receive Date: 20150821
  Receipt Date: 20150821
  Transmission Date: 20151125
  Serious: No
  Sender: FDA-Public Use
  Company Number: US-ELI_LILLY_AND_COMPANY-US201403000340

PATIENT
  Sex: Male
  Weight: 65.76 kg

DRUGS (5)
  1. LEVITRA [Concomitant]
     Active Substance: VARDENAFIL HYDROCHLORIDE TRIHYDRATE
     Dosage: 1 DF, UNKNOWN
  2. WARFARIN [Concomitant]
     Active Substance: WARFARIN
     Dosage: 2.5 MG, QD
     Dates: start: 2004
  3. CIALIS [Suspect]
     Active Substance: TADALAFIL
     Indication: ERECTILE DYSFUNCTION
     Dosage: 20 MG, PRN
     Route: 065
  4. LISINOPRIL. [Concomitant]
     Active Substance: LISINOPRIL
     Dosage: 2.5 MG, QD
  5. VIAGRA [Concomitant]
     Active Substance: SILDENAFIL CITRATE
     Dosage: 1 DF, UNKNOWN

REACTIONS (2)
  - Suspected counterfeit product [Unknown]
  - Drug ineffective [Recovered/Resolved]
